FAERS Safety Report 5635066-4 (Version None)
Quarter: 2008Q1

REPORT INFORMATION
  Report Type: 
  Country: None (occurrence: None)
  Receive Date: 20080222
  Receipt Date: 20080218
  Transmission Date: 20080703
  Serious: Yes (Disabling)
  Sender: FDA-Public Use
  Company Number: GB-ABBOTT-08P-167-0438838-00

PATIENT
  Age: 50 Year
  Sex: Male
  Weight: 127 kg

DRUGS (2)
  1. REDUCTIL 10MG [Suspect]
     Indication: DRUG USE FOR UNKNOWN INDICATION
     Dates: start: 20071221, end: 20080108
  2. BISOPROLOL FUMARATE [Concomitant]
     Indication: DRUG USE FOR UNKNOWN INDICATION
     Dates: start: 20031010

REACTIONS (1)
  - PENIS DISORDER [None]
